FAERS Safety Report 6437845-2 (Version None)
Quarter: 2009Q4

REPORT INFORMATION
  Report Type: 
  Country: None (occurrence: None)
  Receive Date: 20091112
  Receipt Date: 20091105
  Transmission Date: 20100525
  Serious: Yes (Other)
  Sender: FDA-Public Use
  Company Number: US-JNJCH-2009029299

PATIENT
  Age: 37 Year
  Sex: Male
  Weight: 72.6 kg

DRUGS (2)
  1. ZYRTEC [Suspect]
     Indication: HYPERSENSITIVITY
     Dosage: TEXT:1 TABLET 1X
     Route: 048
  2. ANTIHYPERTENSIVES [Concomitant]
     Indication: HYPERTENSION
     Dosage: TEXT:UNSPECIFIED
     Route: 065

REACTIONS (5)
  - ADVERSE REACTION [None]
  - BLOOD PRESSURE DIASTOLIC INCREASED [None]
  - DYSPNOEA [None]
  - HEART RATE INCREASED [None]
  - SPEECH DISORDER [None]
